FAERS Safety Report 9030332 (Version 2)
Quarter: 2013Q1

REPORT INFORMATION
  Report Type: Spontaneous
  Country: US (occurrence: US)
  Receive Date: 20130122
  Receipt Date: 20130217
  Transmission Date: 20140127
  Serious: Yes (Other)
  Sender: FDA-Public Use
  Company Number: US-BRISTOL-MYERS SQUIBB COMPANY-17282104

PATIENT
  Age: 73 Year
  Sex: Male
  Weight: 77.1 kg

DRUGS (15)
  1. SPRYCEL (CML) TABS 100 MG [Suspect]
     Indication: CHRONIC MYELOID LEUKAEMIA
     Dosage: REDUCED TO 50MG/D
     Route: 048
     Dates: start: 201205
  2. DIGOXIN TABS [Concomitant]
     Dosage: DIGOXIN 0.25NMG TABS RPT
     Route: 048
  3. HYDROCHLOROTHIAZIDE [Concomitant]
     Dosage: TABS RPT
     Route: 048
  4. LORAZEPAM [Concomitant]
     Dosage: TABS RPT
     Route: 048
  5. TOPROL XL [Concomitant]
     Dosage: TABS RPT
  6. AMLODIPINE BESYLATE [Concomitant]
     Dosage: TABS RPT
     Route: 048
  7. MUCINEX [Concomitant]
     Dosage: TABS RPT?EXTENDED RELEASE 12 HR
     Route: 048
  8. ASPIRIN [Concomitant]
     Dosage: TABS RPT
     Route: 048
  9. ALENDRONATE SODIUM [Concomitant]
     Dosage: TABS RPT
     Route: 048
  10. PREDNISONE [Concomitant]
     Dosage: TABS RPT
     Route: 048
  11. DUONEB [Concomitant]
     Dosage: SOL RPT
  12. AMOXICILLIN+POTASS CLAVULANATE [Concomitant]
     Dosage: 1 DF:875-125MG TABS
     Route: 048
  13. TAMSULOSIN HCL [Concomitant]
     Dosage: 1 DF:1 0.4MG CAPSULES
     Route: 048
  14. NORVASC [Concomitant]
     Dosage: TABS RPT
     Route: 048
  15. VITAMIN D3 [Concomitant]
     Dosage: 1 DF:1000 UNITS?TABS RPT
     Route: 048

REACTIONS (3)
  - Chronic obstructive pulmonary disease [Unknown]
  - Pollakiuria [Unknown]
  - Headache [Unknown]
